FAERS Safety Report 5733156-9 (Version None)
Quarter: 2008Q2

REPORT INFORMATION
  Report Type: 
  Country: None (occurrence: None)
  Receive Date: 20080507
  Receipt Date: 20080421
  Transmission Date: 20081010
  Serious: Yes (Other)
  Sender: FDA-Public Use
  Company Number: 2008JP001775

PATIENT
  Age: 73 Year
  Sex: Male
  Weight: 53 kg

DRUGS (14)
  1. FUNGUARD  (MICAFUNGIN) INJECTION [Suspect]
     Indication: BRONCHOPULMONARY ASPERGILLOSIS
     Dosage: 150 MG, D; 300 MG, UID/QD, IV DRIP
     Route: 041
     Dates: start: 20080303, end: 20080319
  2. FUNGUARD  (MICAFUNGIN) INJECTION [Suspect]
     Indication: BRONCHOPULMONARY ASPERGILLOSIS
     Dosage: 150 MG, D; 300 MG, UID/QD, IV DRIP
     Route: 041
  3. AMBISOME [Suspect]
     Indication: BRONCHOPULMONARY ASPERGILLOSIS
     Dosage: 150 MG, UID/QD, IV DRIP
     Route: 041
     Dates: start: 20080214, end: 20080319
  4. DILTIAZEM HYDROCHLORIDE [Concomitant]
  5. SINLESTAL (PROBUCOL) TABLET [Concomitant]
  6. BUFFERIN (MAGNESIUM CARBONATE) TABLET [Concomitant]
  7. ITOROL (ISOSORBIDE MONONITRATE) TABLET [Concomitant]
  8. ZANTAC (RANITDINE HYDROCHLORIDE) TABLET [Concomitant]
  9. SPIRIVA (TIOTROPIUM BROMIDE) CAPSULE [Concomitant]
  10. PREDNISOLONE TAB [Concomitant]
  11. BAKTAR (SULFAMETHOXAZOLE, TRIMETHOPRIM) TABLET [Concomitant]
  12. CODEINE PHOSPHATE POWDER [Concomitant]
  13. MAGNESIUM OXIDE (MAGNESIUM OXIDE) POWDER [Concomitant]
  14. MUCOSTA (REBAMIPIDE) TABLET [Concomitant]

REACTIONS (6)
  - AMNESIA [None]
  - BACTERIAL INFECTION [None]
  - BRONCHOPULMONARY ASPERGILLOSIS [None]
  - CONDITION AGGRAVATED [None]
  - DRUG INTERACTION [None]
  - LUNG INFILTRATION [None]
